FAERS Safety Report 14497686 (Version 1)
Quarter: 2018Q1

REPORT INFORMATION
  Report Type: Report from Study
  Country: IL (occurrence: IL)
  Receive Date: 20180207
  Receipt Date: 20180207
  Transmission Date: 20180509
  Serious: Yes (Death, Life-Threatening, Hospitalization)
  Sender: FDA-Public Use
  Company Number: PHHO2017IL009496

PATIENT
  Age: 66 Year
  Sex: Female
  Weight: 66 kg

DRUGS (3)
  1. PREDNISONE. [Suspect]
     Active Substance: PREDNISONE
     Indication: ACUTE GRAFT VERSUS HOST DISEASE
     Dosage: 15 MG, QD
     Route: 048
     Dates: start: 20170612, end: 20170620
  2. TACROLIMUS. [Suspect]
     Active Substance: TACROLIMUS
     Indication: ACUTE GRAFT VERSUS HOST DISEASE
     Dosage: 0.5 MG, QD
     Route: 050
     Dates: start: 20170618, end: 20170620
  3. EXTRACORPOREAL PHOTOPHERESIS (METHOXSALEN) [Suspect]
     Active Substance: METHOXSALEN
     Indication: ACUTE GRAFT VERSUS HOST DISEASE
     Dosage: QW
     Route: 042
     Dates: start: 20170615, end: 20170615

REACTIONS (7)
  - Renal failure [None]
  - Pneumonia aspiration [None]
  - Sepsis [Fatal]
  - Somnolence [None]
  - Respiratory arrest [None]
  - Acidosis [None]
  - Atrial fibrillation [None]

NARRATIVE: CASE EVENT DATE: 20170618
